FAERS Safety Report 6104774-3 (Version None)
Quarter: 2009Q1

REPORT INFORMATION
  Report Type: 
  Country: None (occurrence: None)
  Receive Date: 20090304
  Receipt Date: 20090304
  Transmission Date: 20090719
  Serious: Yes (Disabling, Other)
  Sender: FDA-Public Use
  Company Number: None

PATIENT
  Sex: Female
  Weight: 65.7716 kg

DRUGS (1)
  1. REGLAN [Suspect]
     Indication: HIATUS HERNIA
     Dates: start: 20030101, end: 20050101

REACTIONS (1)
  - TARDIVE DYSKINESIA [None]
